FAERS Safety Report 5014415-4 (Version None)
Quarter: 2006Q2

REPORT INFORMATION
  Report Type: 
  Country: None (occurrence: None)
  Receive Date: 20060526
  Receipt Date: 20060526
  Transmission Date: 20061013
  Serious: Yes (Hospitalization)
  Sender: FDA-Public Use
  Company Number: None

PATIENT
  Sex: Female

DRUGS (3)
  1. OXALIPLATIN [Suspect]
  2. XELODA [Suspect]
  3. K-DUR 10 [Concomitant]

REACTIONS (4)
  - ABASIA [None]
  - ASTHENIA [None]
  - FATIGUE [None]
  - OEDEMA PERIPHERAL [None]
